FAERS Safety Report 17566174 (Version 1)
Quarter: 2020Q1

REPORT INFORMATION
  Report Type: Report from Study
  Country: US (occurrence: US)
  Receive Date: 20200320
  Receipt Date: 20200320
  Transmission Date: 20200409
  Serious: Yes (Hospitalization)
  Sender: FDA-Public Use
  Company Number: US-BAYER-2020-045975

PATIENT
  Age: 74 Year
  Sex: Male
  Weight: 81.2 kg

DRUGS (7)
  1. REGORAFENIB. [Suspect]
     Active Substance: REGORAFENIB
     Indication: HAEMATOLOGICAL MALIGNANCY
     Dosage: 160 MG, QD
     Route: 048
     Dates: start: 20200225, end: 20200310
  2. MORPHINE [Concomitant]
     Active Substance: MORPHINE
  3. ONDANSETRON [Concomitant]
     Active Substance: ONDANSETRON
  4. VITAMINS NOS [Concomitant]
     Active Substance: VITAMINS
  5. BACLOFEN. [Concomitant]
     Active Substance: BACLOFEN
  6. DYAZIDE [Concomitant]
     Active Substance: HYDROCHLOROTHIAZIDE\TRIAMTERENE
  7. SYNTHROID [Concomitant]
     Active Substance: LEVOTHYROXINE SODIUM

REACTIONS (5)
  - Rash [None]
  - Asthenia [None]
  - Atrial flutter [None]
  - Dyspnoea [None]
  - Supraventricular tachycardia [None]

NARRATIVE: CASE EVENT DATE: 20200311
